FAERS Safety Report 23407698 (Version 4)
Quarter: 2024Q3

REPORT INFORMATION
  Report Type: Report from Study
  Country: CA (occurrence: CA)
  Receive Date: 20240117
  Receipt Date: 20240829
  Transmission Date: 20241017
  Serious: Yes (Hospitalization)
  Sender: ROCHE
  Company Number: CA-ROCHE-3488601

PATIENT
  Sex: Female

DRUGS (1)
  1. OCREVUS [Suspect]
     Active Substance: OCRELIZUMAB
     Indication: Primary progressive multiple sclerosis
     Dosage: MORE DOSAGE INFORMATION IS 300 MG AT DAY 0 AND 14, THEN 600 MG EVERY 6 MONTHS
     Route: 042
     Dates: start: 20230822

REACTIONS (9)
  - Anaemia [Unknown]
  - Haemorrhage [Unknown]
  - Memory impairment [Unknown]
  - Haemoglobin decreased [Not Recovered/Not Resolved]
  - Sinusitis bacterial [Not Recovered/Not Resolved]
  - Vulvovaginal mycotic infection [Recovering/Resolving]
  - Fungal skin infection [Recovering/Resolving]
  - Drug hypersensitivity [Unknown]
  - Dysphagia [Not Recovered/Not Resolved]
